FAERS Safety Report 10231203 (Version 2)
Quarter: 2014Q2

REPORT INFORMATION
  Report Type: Spontaneous
  Country: AU (occurrence: AU)
  Receive Date: 20140611
  Receipt Date: 20140611
  Transmission Date: 20141212
  Serious: Yes (Hospitalization)
  Sender: FDA-Public Use
  Company Number: AU-ALEXION PHARMACEUTICALS INC.-A201400963

PATIENT
  Sex: 0

DRUGS (1)
  1. SOLIRIS 300MG [Suspect]
     Indication: PAROXYSMAL NOCTURNAL HAEMOGLOBINURIA
     Dosage: 900 MG, Q2W
     Route: 042
     Dates: start: 20130905

REACTIONS (5)
  - Malaise [Unknown]
  - Haemoglobin abnormal [Unknown]
  - Feeling abnormal [Unknown]
  - Influenza [Unknown]
  - Diarrhoea [Unknown]
